FAERS Safety Report 8486430-X (Version None)
Quarter: 2012Q3

REPORT INFORMATION
  Report Type: 
  Country: None (occurrence: None)
  Receive Date: 20120703
  Receipt Date: 20120618
  Transmission Date: 20120928
  Serious: Yes (Hospitalization)
  Sender: FDA-Public Use
  Company Number: CHPA2012US013175

PATIENT
  Age: 58 Year
  Sex: Female

DRUGS (5)
  1. PREDNISONE [Concomitant]
     Dosage: UNK,  UNK
     Dates: start: 20120614
  2. DRUG THERAPY NOS [Concomitant]
     Indication: ASTHMA
     Dosage: UNK, UNK
  3. DRUG THERAPY NOS [Concomitant]
     Indication: DYSPEPSIA
     Dosage: UNK, UNK
  4. NICOTINE [Suspect]
     Dosage: 14 MG, ONCE OR MORE A DAY
     Route: 062
  5. NICOTINE [Suspect]
     Indication: SMOKING CESSATION THERAPY
     Dosage: 14 MG, QD
     Route: 062

REACTIONS (7)
  - OVERDOSE [None]
  - UNDERDOSE [None]
  - TREATMENT NONCOMPLIANCE [None]
  - EXPIRED DRUG ADMINISTERED [None]
  - MALAISE [None]
  - DRY MOUTH [None]
  - FEELING ABNORMAL [None]
